FAERS Safety Report 15572338 (Version 2)
Quarter: 2018Q4

REPORT INFORMATION
  Report Type: Spontaneous
  Country: CZ (occurrence: CZ)
  Receive Date: 20181031
  Receipt Date: 20181112
  Transmission Date: 20190205
  Serious: Yes (Other)
  Sender: FDA-Public Use
  Company Number: CZ-MYLANLABS-2018M1081338

PATIENT
  Age: 49 Year
  Sex: Female

DRUGS (2)
  1. GEMCITABINE [Suspect]
     Active Substance: GEMCITABINE\GEMCITABINE HYDROCHLORIDE
     Indication: PANCREATIC CARCINOMA
     Dosage: 1000 MG/M2, CYCLE (1000 MG/M2 ON DAY 1, 8 AND 15 EVERY 28 DAYS)
     Route: 042
     Dates: start: 20161005, end: 2017
  2. GEMCITABINE [Suspect]
     Active Substance: GEMCITABINE\GEMCITABINE HYDROCHLORIDE
     Dosage: 1000 MG/M2, CYCLE (1000 MG/M2 ON DAY 1, 8 AND 15 EVERY 28 DAYS)
     Route: 042
     Dates: start: 20161221

REACTIONS (5)
  - Thrombocytopenia [Unknown]
  - Fatigue [Not Recovered/Not Resolved]
  - Venous thrombosis [Recovered/Resolved]
  - Neuropathy peripheral [Not Recovered/Not Resolved]
  - Neutropenia [Recovered/Resolved]

NARRATIVE: CASE EVENT DATE: 2017
